FAERS Safety Report 24151176 (Version 1)
Quarter: 2024Q3

REPORT INFORMATION
  Report Type: Spontaneous
  Country: US (occurrence: None)
  Receive Date: 20240729
  Receipt Date: 20240729
  Transmission Date: 20241016
  Serious: Yes (Hospitalization)
  Sender: Public
  Company Number: None

PATIENT
  Age: 61 Year
  Sex: Female
  Weight: 63 kg

DRUGS (9)
  1. NALOXONE HYDROCHLORIDE [Suspect]
     Active Substance: NALOXONE HYDROCHLORIDE
     Indication: Overdose
     Dosage: 2 SPRAY(S) AS NEEDED RESPIRATHORY (INHALATION(
     Route: 055
     Dates: start: 20240718, end: 20240718
  2. HYDROCODONE [Suspect]
     Active Substance: HYDROCODONE
  3. SERTRALINE [Concomitant]
  4. METFORMIN [Concomitant]
  5. ATORVASTATIN [Concomitant]
  6. FISH OIL [Concomitant]
  7. VITAMIN D3 [Concomitant]
     Active Substance: CHOLECALCIFEROL
  8. probiotic [Concomitant]
  9. multi-vitamin [Concomitant]

REACTIONS (4)
  - Dizziness [None]
  - Accidental overdose [None]
  - Wrong technique in product usage process [None]
  - Product label confusion [None]

NARRATIVE: CASE EVENT DATE: 20240718
